FAERS Safety Report 15679247 (Version 1)
Quarter: 2018Q4

REPORT INFORMATION
  Report Type: Spontaneous
  Country: ES (occurrence: ES)
  Receive Date: 20181203
  Receipt Date: 20181203
  Transmission Date: 20190205
  Serious: Yes (Other)
  Sender: FDA-Public Use
  Company Number: ES-TEVA-2018-ES-980813

PATIENT
  Age: 19 Year
  Sex: Female

DRUGS (5)
  1. DEXTROMETORFANO (727A) [Interacting]
     Active Substance: DEXTROMETHORPHAN
     Route: 048
     Dates: start: 201811
  2. QUETIAPINE. [Suspect]
     Active Substance: QUETIAPINE
     Indication: BORDERLINE PERSONALITY DISORDER
     Dosage: 100 MILLIGRAM DAILY;
     Route: 048
  3. EUTIROX 100 MICROGRAMOS COMPRIMIDOS , 100 COMPRIMIDOS [Concomitant]
     Indication: HYPOTHYROIDISM
     Dosage: 100 MILLIGRAM DAILY;
     Route: 048
  4. CYMBALTA [Interacting]
     Active Substance: DULOXETINE HYDROCHLORIDE
     Dosage: 60 MILLIGRAM DAILY;
     Route: 048
  5. CYMBALTA [Interacting]
     Active Substance: DULOXETINE HYDROCHLORIDE
     Indication: BORDERLINE PERSONALITY DISORDER
     Dosage: 30 MILLIGRAM DAILY;
     Route: 048

REACTIONS (6)
  - Nausea [Unknown]
  - Dizziness [Recovering/Resolving]
  - Chest pain [Recovered/Resolved]
  - Drug interaction [Unknown]
  - Tremor [Recovering/Resolving]
  - Palpitations [Unknown]

NARRATIVE: CASE EVENT DATE: 20181103
